FAERS Safety Report 4364471-1 (Version None)
Quarter: 2004Q2

REPORT INFORMATION
  Report Type: 
  Country: None (occurrence: None)
  Receive Date: 20040525
  Receipt Date: 20040512
  Transmission Date: 20050107
  Serious: Yes (Other)
  Sender: FDA-Public Use
  Company Number: AU-GLAXOSMITHKLINE-B0332974A

PATIENT
  Sex: Male

DRUGS (1)
  1. ZYBAN [Suspect]
     Route: 048

REACTIONS (5)
  - AGGRESSION [None]
  - DECREASED APPETITE [None]
  - INSOMNIA [None]
  - MOOD ALTERED [None]
  - OBSESSIVE THOUGHTS [None]
